FAERS Safety Report 8928632 (Version 2)
Quarter: 2013Q1

REPORT INFORMATION
  Report Type: Spontaneous
  Country: FR (occurrence: FR)
  Receive Date: 20121128
  Receipt Date: 20130107
  Transmission Date: 20140127
  Serious: Yes (Hospitalization, Other)
  Sender: FDA-Public Use
  Company Number: PHHY2012FR107647

PATIENT
  Age: 31 Year
  Sex: Female

DRUGS (7)
  1. MYFORTIC [Suspect]
     Dosage: 360 MG, BID
     Route: 048
     Dates: start: 20110915, end: 20120919
  2. PROGRAF [Concomitant]
     Dosage: 2.5 MG, BID
     Route: 048
     Dates: start: 20110915, end: 20121019
  3. PREDNISONE [Concomitant]
     Dosage: 5 MG, UNK
  4. TARDYFERON [Concomitant]
     Dosage: UNK UKN, UNK
  5. INEXIUM [Concomitant]
     Dosage: UNK UKN, UNK
  6. ACTONEL [Concomitant]
     Dosage: UNK UKN, UNK
  7. CACIT D3 [Concomitant]
     Dosage: UNK UKN, UNK

REACTIONS (8)
  - Asthenia [Unknown]
  - Leukopenia [Unknown]
  - Pyrexia [Unknown]
  - Neutropenia [Recovered/Resolved]
  - Aphthous stomatitis [Unknown]
  - C-reactive protein abnormal [Unknown]
  - Red blood cell sedimentation rate increased [Unknown]
  - Immunosuppressant drug level increased [Unknown]
